FAERS Safety Report 18920842 (Version 1)
Quarter: 2021Q1

REPORT INFORMATION
  Report Type: Spontaneous
  Country: CA (occurrence: CA)
  Receive Date: 20210222
  Receipt Date: 20210222
  Transmission Date: 20210420
  Serious: Yes (Hospitalization)
  Sender: FDA-Public Use
  Company Number: CA-JNJFOC-20210138963

PATIENT
  Age: 52 Year
  Sex: Male

DRUGS (3)
  1. INVEGA SUSTENNA [Suspect]
     Active Substance: PALIPERIDONE PALMITATE
  2. INVEGA SUSTENNA [Suspect]
     Active Substance: PALIPERIDONE PALMITATE
     Indication: SCHIZOPHRENIA
     Route: 030
  3. INVEGA SUSTENNA [Suspect]
     Active Substance: PALIPERIDONE PALMITATE

REACTIONS (13)
  - Disturbance in attention [Unknown]
  - Insomnia [Unknown]
  - Inappropriate schedule of product administration [Unknown]
  - Drug level decreased [Unknown]
  - Off label use [Unknown]
  - Drug ineffective [Unknown]
  - Pain [Unknown]
  - Dyspnoea [Unknown]
  - Choking sensation [Unknown]
  - Anxiety [Unknown]
  - Asthenia [Unknown]
  - Feeling abnormal [Unknown]
  - Head discomfort [Unknown]
